FAERS Safety Report 15370096 (Version 1)
Quarter: 2018Q3

REPORT INFORMATION
  Report Type: Spontaneous
  Country: JP (occurrence: JP)
  Receive Date: 20180911
  Receipt Date: 20180911
  Transmission Date: 20181010
  Serious: Yes (Hospitalization)
  Sender: FDA-Public Use
  Company Number: JP-ASTRAZENECA-2018SF15671

PATIENT

DRUGS (1)
  1. TAGRISSO [Suspect]
     Active Substance: OSIMERTINIB
     Indication: NON-SMALL CELL LUNG CANCER
     Route: 048
     Dates: start: 20180803, end: 20180817

REACTIONS (2)
  - Pyrexia [Recovering/Resolving]
  - Non-cardiogenic pulmonary oedema [Recovering/Resolving]

NARRATIVE: CASE EVENT DATE: 20180817
